FAERS Safety Report 24645437 (Version 1)
Quarter: 2024Q4

REPORT INFORMATION
  Report Type: Spontaneous
  Country: US (occurrence: US)
  Receive Date: 20241121
  Receipt Date: 20241121
  Transmission Date: 20250115
  Serious: Yes (Other)
  Sender: TEVA
  Company Number: US-TEVA-VS-3265470

PATIENT
  Sex: Male

DRUGS (1)
  1. METOPROLOL [Suspect]
     Active Substance: METOPROLOL
     Indication: Atrial tachycardia
     Route: 065

REACTIONS (2)
  - Electrocardiogram PR prolongation [Unknown]
  - Defect conduction intraventricular [Unknown]
